FAERS Safety Report 7061041-1 (Version None)
Quarter: 2010Q4

REPORT INFORMATION
  Report Type: 
  Country: None (occurrence: None)
  Receive Date: 20101026
  Receipt Date: 20101018
  Transmission Date: 20110411
  Serious: Yes (Other)
  Sender: FDA-Public Use
  Company Number: JP-PFIZER INC-2010125000

PATIENT
  Age: 64 Year
  Sex: Male

DRUGS (6)
  1. CHAMPIX [Suspect]
     Indication: SMOKING CESSATION THERAPY
     Dosage: 0.5 MG, 1X/DAY
     Route: 048
     Dates: start: 20100914, end: 20100917
  2. AMLODIN [Concomitant]
     Indication: HYPERTENSION
     Dosage: 0.5 MG, 1X/DAY
     Route: 048
     Dates: start: 20100723
  3. FLIVAS [Concomitant]
     Indication: BENIGN PROSTATIC HYPERPLASIA
     Dosage: 25 MG, 1X/DAY
     Route: 048
     Dates: start: 20100830
  4. LENDORMIN [Concomitant]
     Indication: INSOMNIA
     Dosage: 2.5 MG, 1X/DAY
     Route: 048
     Dates: start: 20100723
  5. TAKEPRON [Concomitant]
     Dosage: UNK
  6. GASTER [Concomitant]
     Indication: REFLUX OESOPHAGITIS
     Dosage: 20 MG, 1X/DAY
     Route: 048
     Dates: start: 20100819

REACTIONS (4)
  - BLOOD PRESSURE INCREASED [None]
  - LOSS OF CONSCIOUSNESS [None]
  - MUSCULAR WEAKNESS [None]
  - PAIN IN EXTREMITY [None]
